FAERS Safety Report 4897573-1 (Version None)
Quarter: 2005Q4

REPORT INFORMATION
  Report Type: 
  Country: None (occurrence: None)
  Receive Date: 20051223
  Receipt Date: 20050909
  Transmission Date: 20060501
  Serious: No
  Sender: FDA-Public Use
  Company Number: 05P-163-0310622-00

PATIENT
  Age: 56 Year
  Sex: Female
  Weight: 87.9978 kg

DRUGS (7)
  1. HUMIRA [Suspect]
     Indication: RHEUMATOID ARTHRITIS
     Dosage: 40 MG, 1 IN 2 WK, SUBCUTANEOUS
     Route: 058
     Dates: start: 20041001, end: 20050701
  2. METHOTREXATE [Concomitant]
  3. FOLIC ACID [Concomitant]
  4. IODINE [Concomitant]
  5. PROVELLA-14 [Concomitant]
  6. LEVOTHYROXINE SODIUM [Concomitant]
  7. RABEPRAZOLE SODIUM [Concomitant]

REACTIONS (1)
  - HEADACHE [None]
